FAERS Safety Report 8313350-3 (Version None)
Quarter: 2012Q2

REPORT INFORMATION
  Report Type: 
  Country: None (occurrence: None)
  Receive Date: 20120426
  Receipt Date: 20120412
  Transmission Date: 20120825
  Serious: Yes (Other)
  Sender: FDA-Public Use
  Company Number: US-UCBSA-055840

PATIENT

DRUGS (3)
  1. OMEPRAZOLE [Interacting]
  2. METHOTREXATE [Suspect]
     Indication: BONE SARCOMA
     Dosage: HIGH DOSE
  3. LEUCOVORIN CALCIUM [Concomitant]

REACTIONS (2)
  - DRUG LEVEL INCREASED [None]
  - DRUG INTERACTION [None]
